FAERS Safety Report 17472709 (Version 1)
Quarter: 2020Q1

REPORT INFORMATION
  Report Type: Spontaneous
  Country: US (occurrence: US)
  Receive Date: 20200227
  Receipt Date: 20200227
  Transmission Date: 20200409
  Serious: Yes (Disabling)
  Sender: FDA-Public Use
  Company Number: None

PATIENT
  Age: 80 Year
  Sex: Female
  Weight: 84.15 kg

DRUGS (4)
  1. OMEPRAZOLE. [Concomitant]
     Active Substance: OMEPRAZOLE
  2. MAGNESIUM [Concomitant]
     Active Substance: MAGNESIUM
  3. BEOVU [Suspect]
     Active Substance: BROLUCIZUMAB-DBLL
     Indication: AGE-RELATED MACULAR DEGENERATION
     Route: 047
     Dates: start: 20191018, end: 20191018
  4. HYZAR [Concomitant]

REACTIONS (9)
  - Visual acuity reduced [None]
  - Vision blurred [None]
  - Product communication issue [None]
  - Alopecia [None]
  - Tooth fracture [None]
  - Insomnia [None]
  - Retinal oedema [None]
  - Loss of personal independence in daily activities [None]
  - Anxiety [None]

NARRATIVE: CASE EVENT DATE: 20191018
